FAERS Safety Report 7527330-9 (Version None)
Quarter: 2011Q2

REPORT INFORMATION
  Report Type: 
  Country: None (occurrence: None)
  Receive Date: 20110607
  Receipt Date: 20110518
  Transmission Date: 20111010
  Serious: Yes (Death, Hospitalization, Other)
  Sender: FDA-Public Use
  Company Number: US-BAYER-201039752NA

PATIENT
  Age: 95 Year
  Sex: Female
  Weight: 68.027 kg

DRUGS (8)
  1. PLASMA [Concomitant]
     Dosage: 2 U, UNK
     Route: 042
     Dates: start: 20030411, end: 20030411
  2. ALEVE (CAPLET) [Concomitant]
     Dosage: UNK UNK, PRN
     Route: 048
  3. AMIODARONE HCL [Concomitant]
     Dosage: UNK
     Dates: start: 20030411
  4. PLATELETS [Concomitant]
     Dosage: 6 U, UNK
     Dates: start: 20030411, end: 20030411
  5. TRASYLOL [Suspect]
     Indication: CORONARY ARTERY BYPASS
     Route: 042
     Dates: start: 20030411, end: 20030411
  6. ADVIL LIQUI-GELS [Concomitant]
     Dosage: UNK UNK, PRN
     Route: 048
  7. RED BLOOD CELLS [Concomitant]
     Dosage: 4 U, UNK
     Route: 042
     Dates: start: 20030411, end: 20030411
  8. ASPIRIN [Concomitant]
     Route: 048

REACTIONS (13)
  - RENAL FAILURE [None]
  - EMOTIONAL DISTRESS [None]
  - INJURY [None]
  - DEATH [None]
  - RENAL IMPAIRMENT [None]
  - PAIN [None]
  - STRESS [None]
  - RENAL INJURY [None]
  - MULTI-ORGAN FAILURE [None]
  - DEPRESSION [None]
  - ANXIETY [None]
  - UNEVALUABLE EVENT [None]
  - FEAR [None]
